FAERS Safety Report 16991903 (Version 1)
Quarter: 2019Q4

REPORT INFORMATION
  Report Type: Spontaneous
  Country: US (occurrence: US)
  Receive Date: 20190921
  Receipt Date: 20190921
  Transmission Date: 20200122
  Serious: No
  Sender: FDA-Public Use
  Company Number: None

PATIENT
  Age: 29 Year
  Sex: Female

DRUGS (1)
  1. GLATOPA [Suspect]
     Active Substance: GLATIRAMER ACETATE
     Route: 058
     Dates: start: 201908

REACTIONS (5)
  - Injection site induration [None]
  - Flushing [None]
  - Malaise [None]
  - Injection site mass [None]
  - Therapy cessation [None]

NARRATIVE: CASE EVENT DATE: 20190921
